FAERS Safety Report 5190527-X (Version None)
Quarter: 2006Q4

REPORT INFORMATION
  Report Type: 
  Country: None (occurrence: None)
  Receive Date: 20061222
  Receipt Date: 20061214
  Transmission Date: 20070319
  Serious: Yes (Hospitalization)
  Sender: FDA-Public Use
  Company Number: GB-ROCHE-475076

PATIENT
  Age: 61 Year
  Sex: Female

DRUGS (6)
  1. CAPECITABINE [Suspect]
     Dosage: GIVEN FOR 14 DAYS FOLLOWED BY A WEEK REST.
     Route: 048
     Dates: start: 20060314, end: 20060323
  2. GEMCITABINE [Suspect]
     Dosage: GIVEN ON DAY ONE AND EIGHT OF A THREE WEEK CYCLE.
     Route: 042
     Dates: start: 20060314, end: 20060321
  3. ONDANSETRON HCL [Concomitant]
     Dosage: GIVEN ON 14 MARCH 2006 AND ON 21 MARCH 2006.
     Route: 042
     Dates: start: 20060314, end: 20060321
  4. DEXAMETHASONE [Concomitant]
     Dosage: GIVEN ON 14 MARCH 2006 AND ON 21 MARCH 2006.
     Route: 042
     Dates: start: 20060314, end: 20060321
  5. GAVISCON [Concomitant]
     Route: 048
     Dates: start: 20060321
  6. OMEPRAZOLE [Concomitant]
     Route: 048
     Dates: start: 20060321

REACTIONS (11)
  - ALANINE AMINOTRANSFERASE INCREASED [None]
  - BLOOD ALKALINE PHOSPHATASE INCREASED [None]
  - BLOOD BILIRUBIN INCREASED [None]
  - C-REACTIVE PROTEIN INCREASED [None]
  - DEHYDRATION [None]
  - GAMMA-GLUTAMYLTRANSFERASE [None]
  - GAMMA-GLUTAMYLTRANSFERASE INCREASED [None]
  - ORAL INTAKE REDUCED [None]
  - STENT OCCLUSION [None]
  - VOMITING [None]
  - WHITE BLOOD CELL COUNT INCREASED [None]
